FAERS Safety Report 13257834 (Version 1)
Quarter: 2017Q1

REPORT INFORMATION
  Report Type: Spontaneous
  Country: RU (occurrence: RU)
  Receive Date: 20170221
  Receipt Date: 20170221
  Transmission Date: 20170428
  Serious: Yes (Other)
  Sender: FDA-Public Use
  Company Number: RU-GLAXOSMITHKLINE-RU2017GSK023922

PATIENT
  Sex: Female

DRUGS (2)
  1. INGAVIRIN [Suspect]
     Active Substance: INGAVIRIN
     Indication: RESPIRATORY TRACT INFECTION VIRAL
  2. VALTREX [Suspect]
     Active Substance: VALACYCLOVIR HYDROCHLORIDE
     Indication: HERPES SIMPLEX
     Dosage: 1 DF, BID

REACTIONS (6)
  - Rash [Unknown]
  - Drug ineffective [Unknown]
  - Alanine aminotransferase increased [Not Recovered/Not Resolved]
  - Musculoskeletal chest pain [Unknown]
  - Aspartate aminotransferase increased [Not Recovered/Not Resolved]
  - Poisoning [Unknown]
